FAERS Safety Report 9979361 (Version 1)
Quarter: 2014Q1

REPORT INFORMATION
  Report Type: Report from Study
  Country: US (occurrence: US)
  Receive Date: 20140306
  Receipt Date: 20140306
  Transmission Date: 20141002
  Serious: Yes (Hospitalization)
  Sender: FDA-Public Use
  Company Number: US-ABBVIE-13P-163-1170014-00

PATIENT
  Age: 23 Year
  Sex: Female
  Weight: 74.91 kg

DRUGS (5)
  1. HUMIRA [Suspect]
     Indication: CROHN^S DISEASE
     Route: 058
     Dates: start: 20120208, end: 201310
  2. HUMIRA [Suspect]
     Indication: PYODERMA
     Route: 058
     Dates: start: 201310, end: 201310
  3. HUMIRA [Suspect]
     Route: 058
     Dates: start: 201311
  4. CALCIUM [Concomitant]
     Indication: MINERAL SUPPLEMENTATION
  5. VITAMIN D NOS [Concomitant]
     Indication: VITAMIN SUPPLEMENTATION

REACTIONS (5)
  - Furuncle [Recovering/Resolving]
  - Off label use [Not Recovered/Not Resolved]
  - Furuncle [Recovering/Resolving]
  - Furuncle [Recovering/Resolving]
  - Furuncle [Recovered/Resolved]
